FAERS Safety Report 7317573-1 (Version None)
Quarter: 2011Q1

REPORT INFORMATION
  Report Type: 
  Country: None (occurrence: None)
  Receive Date: 20110226
  Receipt Date: 20101118
  Transmission Date: 20110831
  Serious: No
  Sender: FDA-Public Use
  Company Number: US-ALLERGAN-1014976US

PATIENT
  Age: 81 Year
  Sex: Male

DRUGS (1)
  1. BOTOXA? [Suspect]
     Indication: TORTICOLLIS
     Dosage: 4 UNITS, SINGLE
     Route: 030
     Dates: start: 20101020, end: 20101020

REACTIONS (1)
  - DYSPHAGIA [None]
